FAERS Safety Report 12110888 (Version 1)
Quarter: 2016Q1

REPORT INFORMATION
  Report Type: Spontaneous
  Country: US (occurrence: US)
  Receive Date: 20160224
  Receipt Date: 20160224
  Transmission Date: 20160526
  Serious: No
  Sender: FDA-Public Use
  Company Number: US-JAZZ-2015-US-003771

PATIENT
  Sex: Female

DRUGS (4)
  1. PRIALT [Suspect]
     Active Substance: ZICONOTIDE ACETATE
     Indication: SPINAL PAIN
     Dosage: 0.005 ?G, QH
     Route: 037
     Dates: start: 20150310
  2. FENTANYL. [Suspect]
     Active Substance: FENTANYL
     Indication: BURNING SENSATION
     Dosage: 0.002 ?G, QH
     Route: 037
     Dates: start: 20141124
  3. PRIALT [Suspect]
     Active Substance: ZICONOTIDE ACETATE
     Indication: BURNING SENSATION
     Dosage: 0.017 ?G, QH
     Route: 037
     Dates: start: 20150408
  4. FENTANYL. [Suspect]
     Active Substance: FENTANYL
     Indication: SPINAL PAIN
     Dosage: 0.062 ?G, QH
     Route: 037
     Dates: start: 20141117, end: 20141124

REACTIONS (4)
  - Dry skin [Recovered/Resolved]
  - Insomnia [Unknown]
  - Aphasia [Unknown]
  - Drug ineffective [Unknown]

NARRATIVE: CASE EVENT DATE: 201503
